FAERS Safety Report 15596476 (Version 2)
Quarter: 2024Q1

REPORT INFORMATION
  Report Type: Spontaneous
  Country: IT (occurrence: IT)
  Receive Date: 20181108
  Receipt Date: 20240325
  Transmission Date: 20240410
  Serious: Yes (Other)
  Sender: FDA-Public Use
  Company Number: IT-AUROBINDO-AUR-APL-2018-053673

PATIENT
  Age: 50 Year
  Sex: Female

DRUGS (4)
  1. MIRTAZAPINE [Suspect]
     Active Substance: MIRTAZAPINE
     Indication: Progressive multifocal leukoencephalopathy
     Dosage: 15 MILLIGRAM, ONCE A DAY
     Route: 065
  2. MARAVIROC [Suspect]
     Active Substance: MARAVIROC
     Indication: Progressive multifocal leukoencephalopathy
     Dosage: 300 MILLIGRAM, UNK
     Route: 065
  3. OXYCODONE [Concomitant]
     Active Substance: OXYCODONE\OXYCODONE HYDROCHLORIDE
     Indication: Product use in unapproved indication
     Dosage: UNK
     Route: 065
  4. LEVOTHYROXINE [Concomitant]
     Active Substance: LEVOTHYROXINE\LEVOTHYROXINE SODIUM
     Indication: Product use in unapproved indication
     Dosage: UNK
     Route: 065

REACTIONS (4)
  - Disorientation [Unknown]
  - Quadriplegia [Unknown]
  - Dysarthria [Unknown]
  - Off label use [Unknown]
